FAERS Safety Report 8537569-1 (Version None)
Quarter: 2012Q3

REPORT INFORMATION
  Report Type: 
  Country: None (occurrence: None)
  Receive Date: 20120712
  Receipt Date: 20120710
  Transmission Date: 20120928
  Serious: Yes (Hospitalization)
  Sender: FDA-Public Use
  Company Number: DAV-AE-ACY-12-01

PATIENT
  Age: 56 Year
  Sex: Male

DRUGS (7)
  1. EPOGEN [Concomitant]
  2. ACYCLOVIR [Suspect]
     Indication: HERPES ZOSTER
     Dosage: 500 MG DAILY IN TWO DIVIDED DOSES, INTRAVENOUS
     Route: 042
  3. AMLODIPINE [Concomitant]
  4. ASPIRIN [Concomitant]
  5. IRON [Concomitant]
  6. ANGIOTENSIN CONVERTING ENZYME INHIBITOR [Concomitant]
  7. CALCIUM CARBONATE [Concomitant]

REACTIONS (6)
  - DYSARTHRIA [None]
  - INSOMNIA [None]
  - DISORIENTATION [None]
  - HALLUCINATION, AUDITORY [None]
  - CONFUSIONAL STATE [None]
  - NEUROTOXICITY [None]
